FAERS Safety Report 8271074-5 (Version None)
Quarter: 2012Q2

REPORT INFORMATION
  Report Type: 
  Country: None (occurrence: None)
  Receive Date: 20120410
  Receipt Date: 20120331
  Transmission Date: 20120825
  Serious: No
  Sender: FDA-Public Use
  Company Number: US-BAYER-2012-033350

PATIENT

DRUGS (3)
  1. LORTAB [Concomitant]
  2. ALEVE (CAPLET) [Suspect]
     Indication: TOOTHACHE
     Route: 048
  3. MUSCLE RELAXANTS [Concomitant]

REACTIONS (1)
  - TOOTHACHE [None]
